FAERS Safety Report 17184579 (Version 2)
Quarter: 2020Q1

REPORT INFORMATION
  Report Type: Spontaneous
  Country: US (occurrence: US)
  Receive Date: 20191220
  Receipt Date: 20200115
  Transmission Date: 20200409
  Serious: No
  Sender: FDA-Public Use
  Company Number: US-PFIZER INC-2019546237

PATIENT
  Age: 56 Year
  Sex: Female
  Weight: 69.84 kg

DRUGS (1)
  1. PRISTIQ EXTENDED-RELEASE [Suspect]
     Active Substance: DESVENLAFAXINE SUCCINATE
     Indication: DEPRESSION
     Dosage: 50 MG, 1X/DAY
     Dates: start: 1995

REACTIONS (3)
  - Withdrawal syndrome [Recovered/Resolved]
  - Feeling abnormal [Unknown]
  - Paraesthesia [Recovered/Resolved]
